FAERS Safety Report 5275148-2 (Version None)
Quarter: 2007Q1

REPORT INFORMATION
  Report Type: 
  Country: None (occurrence: None)
  Receive Date: 20061214
  Receipt Date: 20060613
  Transmission Date: 20070707
  Serious: Yes (Hospitalization, Other)
  Sender: FDA-Public Use
  Company Number: 2006075291

PATIENT
  Age: 23 Year
  Sex: Female
  Weight: 46.7205 kg

DRUGS (1)
  1. BEXTRA [Suspect]
     Indication: DYSMENORRHOEA
     Dates: start: 20010101

REACTIONS (3)
  - ASTHMA [None]
  - MYOCARDIAL INFARCTION [None]
  - SKIN REACTION [None]
